FAERS Safety Report 6240302-X (Version None)
Quarter: 2009Q2

REPORT INFORMATION
  Report Type: 
  Country: None (occurrence: None)
  Receive Date: 20090623
  Receipt Date: 20080715
  Transmission Date: 20091009
  Serious: No
  Sender: FDA-Public Use
  Company Number: US-ASTRAZENECA-2008UW12834

PATIENT
  Sex: Female

DRUGS (5)
  1. PULMICORT FLEXHALER [Suspect]
     Indication: EMPHYSEMA
     Dosage: 2 PUFFS
     Route: 055
  2. PULMICORT FLEXHALER [Suspect]
     Dosage: 1 PUFF
     Route: 055
  3. O2 [Concomitant]
  4. ALBUTEROL [Concomitant]
  5. ALBUTEROL [Concomitant]
     Dosage: 2 PUFF BID

REACTIONS (2)
  - DIZZINESS [None]
  - NASAL CONGESTION [None]
